FAERS Safety Report 11409709 (Version 1)
Quarter: 2015Q3

REPORT INFORMATION
  Report Type: Spontaneous
  Country: US (occurrence: US)
  Receive Date: 20150824
  Receipt Date: 20150824
  Transmission Date: 20151125
  Serious: No
  Sender: FDA-Public Use
  Company Number: PHEH2015US015988

PATIENT
  Sex: Female

DRUGS (1)
  1. JADENU [Suspect]
     Active Substance: DEFERASIROX
     Indication: IRON OVERLOAD
     Dosage: 14 MG/KG, QD
     Route: 048
     Dates: start: 20150726, end: 20150813

REACTIONS (1)
  - Hypoaesthesia [Not Recovered/Not Resolved]

NARRATIVE: CASE EVENT DATE: 20150813
